FAERS Safety Report 7272554-1 (Version None)
Quarter: 2011Q1

REPORT INFORMATION
  Report Type: 
  Country: None (occurrence: None)
  Receive Date: 20110131
  Receipt Date: 20110131
  Transmission Date: 20110831
  Serious: Yes (Hospitalization)
  Sender: FDA-Public Use
  Company Number: None

PATIENT
  Age: 84 Year
  Sex: Male
  Weight: 76 kg

DRUGS (9)
  1. HYDROXYCHLOROQUINE [Suspect]
     Indication: SYSTEMIC LUPUS ERYTHEMATOSUS
     Dosage: 200 MG EVERY DAY PO
     Route: 048
     Dates: start: 20110105, end: 20110112
  2. HYDROXYCHLOROQUINE [Suspect]
     Indication: PROPHYLACTIC CHEMOTHERAPY
     Dosage: 200 MG EVERY DAY PO
     Route: 048
     Dates: start: 20110105, end: 20110112
  3. HYDROXYCHLOROQUINE [Suspect]
     Indication: MALARIA
     Dosage: 200 MG EVERY DAY PO
     Route: 048
     Dates: start: 20110105, end: 20110112
  4. HYDROXYCHLOROQUINE [Suspect]
     Indication: RHEUMATOID ARTHRITIS
     Dosage: 200 MG EVERY DAY PO
     Route: 048
     Dates: start: 20110105, end: 20110112
  5. QUETIAPINE [Suspect]
     Indication: BIPOLAR DISORDER
     Dosage: 100 MG HS PO
     Route: 048
     Dates: start: 20110105, end: 20110106
  6. QUETIAPINE [Suspect]
     Indication: MAJOR DEPRESSION
     Dosage: 100 MG HS PO
     Route: 048
     Dates: start: 20110105, end: 20110106
  7. QUETIAPINE [Suspect]
     Indication: PSYCHOTIC DISORDER
     Dosage: 100 MG HS PO
     Route: 048
     Dates: start: 20110105, end: 20110106
  8. QUETIAPINE [Suspect]
     Indication: SCHIZOPHRENIA
     Dosage: 100 MG HS PO
     Route: 048
     Dates: start: 20110105, end: 20110106
  9. QUETIAPINE [Suspect]
     Indication: DELIRIUM
     Dosage: 100 MG HS PO
     Route: 048
     Dates: start: 20110105, end: 20110106

REACTIONS (2)
  - LEUKOPENIA [None]
  - THROMBOCYTOPENIA [None]
